FAERS Safety Report 5348902-6 (Version None)
Quarter: 2007Q2

REPORT INFORMATION
  Report Type: 
  Country: None (occurrence: None)
  Receive Date: 20070607
  Receipt Date: 20070525
  Transmission Date: 20071010
  Serious: Yes (Hospitalization)
  Sender: FDA-Public Use
  Company Number: PHBS2007JP08402

PATIENT
  Age: 13 Year
  Sex: Male

DRUGS (1)
  1. CYCLOSPORINE [Suspect]
     Indication: NEPHROTIC SYNDROME
     Route: 048

REACTIONS (6)
  - BLOOD ANTIDIURETIC HORMONE INCREASED [None]
  - BLOOD CORTICOTROPHIN INCREASED [None]
  - CONVULSION [None]
  - CYCLIC VOMITING SYNDROME [None]
  - NEPHROPATHY TOXIC [None]
  - VOMITING [None]
